FAERS Safety Report 26199300 (Version 1)
Quarter: 2025Q4

REPORT INFORMATION
  Report Type: Spontaneous
  Country: EU (occurrence: EU)
  Receive Date: 20251225
  Receipt Date: 20251225
  Transmission Date: 20260118
  Serious: Yes (Other)
  Sender: SANOFI AVENTIS
  Company Number: None

PATIENT
  Age: 48 Year
  Sex: Male
  Weight: 115 kg

DRUGS (4)
  1. OXALIPLATIN [Suspect]
     Active Substance: OXALIPLATIN
     Indication: Product used for unknown indication
     Dosage: 203 MG
     Route: 042
     Dates: start: 20220412, end: 20220412
  2. FLUOROURACIL [Suspect]
     Active Substance: FLUOROURACIL
     Dosage: 1434 MG
     Route: 042
     Dates: start: 20220412, end: 20220414
  3. FLUOROURACIL [Suspect]
     Active Substance: FLUOROURACIL
     Dosage: 956 MG
     Route: 042
     Dates: start: 20220412, end: 20220413
  4. LEVOLEUCOVORIN DISODIUM [Suspect]
     Active Substance: LEVOLEUCOVORIN DISODIUM
     Dosage: 229 MG
     Route: 042
     Dates: start: 20220412, end: 20220414

REACTIONS (2)
  - Haematuria [Recovering/Resolving]
  - Asthenia [Recovering/Resolving]

NARRATIVE: CASE EVENT DATE: 20220419
